FAERS Safety Report 8463691-4 (Version None)
Quarter: 2012Q2

REPORT INFORMATION
  Report Type: 
  Country: None (occurrence: None)
  Receive Date: 20120625
  Receipt Date: 20120614
  Transmission Date: 20120825
  Serious: Yes (Hospitalization)
  Sender: FDA-Public Use
  Company Number: IT-ASTRAZENECA-2012SE39976

PATIENT
  Age: 26502 Day
  Sex: Female

DRUGS (12)
  1. ESAFOSFINA [Concomitant]
     Dosage: 10 GR./100 ML SOLUTION FOR INFUSION, 100 ML
     Route: 042
     Dates: start: 20111020, end: 20111116
  2. LENDERFOLIN [Concomitant]
     Indication: TOXICITY TO VARIOUS AGENTS
     Dosage: 175 MG POWDER FOR INFUSION
     Dates: start: 20111023, end: 20111031
  3. OMEPRAZOLE [Suspect]
     Indication: PROPHYLAXIS
     Route: 048
     Dates: start: 20110927, end: 20111029
  4. DEXAMETHASONE SODIUM PHOSPHATE [Concomitant]
     Indication: BRAIN OEDEMA
     Dosage: 8 MG/2 ML SOLUTION FOR INJECTION, 16 MG
     Route: 042
     Dates: start: 20111013, end: 20111021
  5. ZOFRAN [Concomitant]
     Indication: PROPHYLAXIS OF NAUSEA AND VOMITING
     Dosage: 40 MG/20 ML SOLUTION FOR INJECTION
     Route: 042
     Dates: start: 20111022, end: 20111024
  6. LAMIVUDINE [Concomitant]
     Indication: PROPHYLAXIS
     Route: 048
     Dates: start: 20111021, end: 20111024
  7. ENOXAPARIN SODIUM [Concomitant]
     Indication: THROMBOSIS PROPHYLAXIS
     Dosage: 4000 UI SOLUTION FOR INJECTION, 1 DF
     Route: 058
     Dates: start: 20110928, end: 20111030
  8. GADRAL [Concomitant]
     Dosage: 800 MG/10 ML ORAL SUSPENSION
     Route: 048
     Dates: start: 20111022, end: 20111024
  9. ALLOPURINOL [Concomitant]
     Indication: HYPERURICAEMIA
     Route: 048
     Dates: start: 20111020, end: 20111025
  10. DEXAMETHASONE SODIUM PHOSPHATE [Concomitant]
     Dosage: 8 MG/2 ML SOLUTION FOR INJECTION, 30 MG
     Route: 042
     Dates: start: 20111022, end: 20111024
  11. METHOTREXATE [Suspect]
     Indication: CENTRAL NERVOUS SYSTEM LYMPHOMA
     Dosage: 1 GR./10 ML SOLUTION FOR INJECTION, 8.6 MG DAILY
     Route: 042
     Dates: start: 20111022, end: 20111022
  12. PROMAZINE HYDROCHLORIDE [Concomitant]
     Dosage: 4 GR/ 100 DROPS
     Route: 048
     Dates: start: 20110930, end: 20111029

REACTIONS (3)
  - BLOOD LACTATE DEHYDROGENASE INCREASED [None]
  - ASPARTATE AMINOTRANSFERASE INCREASED [None]
  - ALANINE AMINOTRANSFERASE INCREASED [None]
